FAERS Safety Report 4774580-0 (Version None)
Quarter: 2005Q3

REPORT INFORMATION
  Report Type: 
  Country: None (occurrence: None)
  Receive Date: 20050914
  Receipt Date: 20041025
  Transmission Date: 20060218
  Serious: Yes (Hospitalization)
  Sender: FDA-Public Use
  Company Number: 163-20785-04100733

PATIENT
  Age: 67 Year
  Sex: Female
  Weight: 51.2565 kg

DRUGS (5)
  1. THALOMID [Suspect]
     Indication: MULTIPLE MYELOMA
     Dosage: 200 MG, QD, ORAL
     Route: 048
     Dates: start: 20010815, end: 20020226
  2. DOXIL [Suspect]
     Indication: MULTIPLE MYELOMA
     Dosage: 50 MG, INTRAVENOUS
     Route: 042
     Dates: start: 20010815, end: 20020226
  3. VINCRISTINE [Suspect]
     Indication: MULTIPLE MYELOMA
     Dosage: 2.0 -1.0 MG
     Dates: start: 20010815, end: 20020226
  4. DECADRON [Suspect]
     Indication: MULTIPLE MYELOMA
     Dosage: 20 MG, QD X 4 DAYS
     Dates: start: 20010815, end: 20020226
  5. PREDNISONE [Suspect]
     Indication: MULTIPLE MYELOMA
     Dosage: 50 MG, QOD, ORAL
     Route: 048
     Dates: start: 20020411

REACTIONS (5)
  - ANAEMIA [None]
  - DYSURIA [None]
  - GASTROINTESTINAL HAEMORRHAGE [None]
  - PYREXIA [None]
  - URINARY TRACT INFECTION [None]
